FAERS Safety Report 6348514-1 (Version None)
Quarter: 2009Q3

REPORT INFORMATION
  Report Type: 
  Country: None (occurrence: None)
  Receive Date: 20090911
  Receipt Date: 20071116
  Transmission Date: 20100115
  Serious: Yes (Hospitalization, Other)
  Sender: FDA-Public Use
  Company Number: US-ASTRAZENECA-2007UW05724

PATIENT
  Age: 15067 Day
  Sex: Female
  Weight: 56.7 kg

DRUGS (10)
  1. SEROQUEL [Suspect]
     Indication: INSOMNIA
     Dosage: 12.5 MG - 25 MG
     Route: 048
     Dates: start: 20000921
  2. SEROQUEL [Suspect]
     Indication: AFFECTIVE DISORDER
     Dosage: 12.5 MG - 25 MG
     Route: 048
     Dates: start: 20000921
  3. SEROQUEL [Suspect]
     Dosage: 25 TO 75 MG
     Route: 048
     Dates: start: 20011119
  4. SEROQUEL [Suspect]
     Dosage: 25 TO 75 MG
     Route: 048
     Dates: start: 20011119
  5. NEURONTIN [Concomitant]
     Indication: CONVULSION
     Dosage: 100 MG - 800 MG
     Dates: start: 20011015
  6. TRAZODONE [Concomitant]
     Dosage: 10 MG - 150 MG
     Dates: start: 20000320
  7. LASIX [Concomitant]
     Dates: start: 20001124
  8. HYDROCODONE BITARTRATE + ACETAMINOPHEN [Concomitant]
     Dosage: 7.5 MG/ 15 ML
     Dates: start: 20010913
  9. SINGULAIR [Concomitant]
     Dates: start: 20060930
  10. CLONAZEPAM [Concomitant]
     Dosage: 0.5 MG - 2 MG
     Dates: start: 20010413

REACTIONS (7)
  - ACUTE RESPIRATORY FAILURE [None]
  - DIABETES MELLITUS INADEQUATE CONTROL [None]
  - DIABETIC KETOACIDOSIS [None]
  - HOSPITALISATION [None]
  - PNEUMONIA ASPIRATION [None]
  - RESPIRATORY FAILURE [None]
  - TYPE 2 DIABETES MELLITUS [None]
